FAERS Safety Report 15642754 (Version 1)
Quarter: 2018Q4

REPORT INFORMATION
  Report Type: Spontaneous
  Country: US (occurrence: US)
  Receive Date: 20181120
  Receipt Date: 20181120
  Transmission Date: 20190205
  Serious: Yes (Life-Threatening, Hospitalization, Disabling)
  Sender: FDA-Public Use
  Company Number: None

PATIENT
  Age: 61 Year
  Sex: Male
  Weight: 85.5 kg

DRUGS (4)
  1. METFORMIN [Concomitant]
     Active Substance: METFORMIN HYDROCHLORIDE
  2. 81 SUPPLEMENT ASPIRIN [Concomitant]
  3. HUMALOG MIX75/25 KWIKPEN [Suspect]
     Active Substance: INSULIN LISPRO
     Indication: TYPE 2 DIABETES MELLITUS
     Dosage: ?          QUANTITY:22 INJECTION(S);?
     Route: 058
  4. ONE A DAY VITAMINS [Concomitant]
     Active Substance: VITAMINS

REACTIONS (3)
  - Fasciitis [None]
  - Gangrene [None]
  - Genital disorder male [None]

NARRATIVE: CASE EVENT DATE: 20180609
